FAERS Safety Report 16202085 (Version 1)
Quarter: 2019Q2

REPORT INFORMATION
  Report Type: Spontaneous
  Country: US (occurrence: US)
  Receive Date: 20190415
  Receipt Date: 20190415
  Transmission Date: 20190711
  Serious: Yes (Hospitalization)
  Sender: FDA-Public Use
  Company Number: None

PATIENT
  Age: 63 Year
  Sex: Male

DRUGS (2)
  1. NIVOLUMAB [Suspect]
     Active Substance: NIVOLUMAB
     Route: 041
     Dates: start: 20180514
  2. IPILIMUMAB [Suspect]
     Active Substance: IPILIMUMAB
     Route: 041
     Dates: start: 20180514

REACTIONS (6)
  - Decreased appetite [None]
  - Back pain [None]
  - Dyspnoea [None]
  - Therapy cessation [None]
  - Rash [None]
  - Colitis [None]

NARRATIVE: CASE EVENT DATE: 20180519
